FAERS Safety Report 25968046 (Version 1)
Quarter: 2025Q4

REPORT INFORMATION
  Report Type: Spontaneous
  Country: EU (occurrence: EU)
  Receive Date: 20251028
  Receipt Date: 20251028
  Transmission Date: 20260117
  Serious: Yes (Life-Threatening)
  Sender: TEVA
  Company Number: None

PATIENT
  Age: 67 Year
  Sex: Female
  Weight: 65 kg

DRUGS (2)
  1. DICLOFENAC [Suspect]
     Active Substance: DICLOFENAC
     Indication: Inflammation
     Dosage: 3X1 PIECE PER DAY, DICLOFENAC SODIUM TABLET MSR  / BRAND NAME NOT SPECIFIED
     Route: 048
     Dates: start: 20251001, end: 20251001
  2. CETIRIZINE DIHCL MYLAN [Concomitant]
     Indication: Product used for unknown indication
     Dosage: CETIRIZINE DIHCL MYLAN TABLET FILM COVER
     Route: 048

REACTIONS (1)
  - Hypersensitivity [Recovered/Resolved]
